FAERS Safety Report 9963353 (Version 1)
Quarter: 2014Q1

REPORT INFORMATION
  Report Type: Report from Study
  Country: US (occurrence: US)
  Receive Date: 20140305
  Receipt Date: 20140305
  Transmission Date: 20141002
  Serious: No
  Sender: FDA-Public Use
  Company Number: US-ABBVIE-13P-163-1119594-00

PATIENT
  Sex: Male

DRUGS (13)
  1. HUMIRA [Suspect]
     Indication: ANKYLOSING SPONDYLITIS
  2. HUMIRA [Suspect]
     Indication: CROHN^S DISEASE
  3. PREDNISONE [Suspect]
     Indication: PRODUCT USED FOR UNKNOWN INDICATION
  4. PROTONIX [Concomitant]
     Indication: PRODUCT USED FOR UNKNOWN INDICATION
  5. RANITIDINE [Concomitant]
     Indication: DYSPEPSIA
  6. XYZAL [Concomitant]
     Indication: HYPERSENSITIVITY
  7. HCTZ [Concomitant]
     Indication: FLUID RETENTION
  8. POTASSIUM 20% LIQUID [Concomitant]
     Indication: PRODUCT USED FOR UNKNOWN INDICATION
  9. VITAMIN D [Concomitant]
     Indication: PRODUCT USED FOR UNKNOWN INDICATION
  10. OTC TYLENOL [Concomitant]
     Indication: PRODUCT USED FOR UNKNOWN INDICATION
     Dosage: AS NEEDED
  11. FLONASE [Concomitant]
     Indication: HYPERSENSITIVITY
  12. IMITREX [Concomitant]
     Indication: MIGRAINE
     Dosage: AS NEEDED
  13. ENBREL [Concomitant]
     Indication: PRODUCT USED FOR UNKNOWN INDICATION
     Dates: end: 201306

REACTIONS (9)
  - Dystonia [Unknown]
  - Neck pain [Not Recovered/Not Resolved]
  - Inflammation [Unknown]
  - Nephrolithiasis [Unknown]
  - Infection [Unknown]
  - Tooth fracture [Unknown]
  - Flatulence [Unknown]
  - Nausea [Unknown]
  - Fistula [Unknown]
